FAERS Safety Report 4301154-8 (Version None)
Quarter: 2004Q1

REPORT INFORMATION
  Report Type: 
  Country: None (occurrence: None)
  Receive Date: 20040219
  Receipt Date: 20040204
  Transmission Date: 20041129
  Serious: Yes (Hospitalization)
  Sender: FDA-Public Use
  Company Number: 2004IM000306

PATIENT
  Age: 45 Year
  Sex: Male

DRUGS (5)
  1. ADVAFERON (A643_INTERFERON ALFACON-1) [Suspect]
     Indication: HEPATITIS C
     Dosage: 18 MU;QD;SUBCUTANEOUS
     Route: 058
     Dates: start: 20020826, end: 20020920
  2. REPAMIPIDE [Concomitant]
  3. POVIDONE IODINE [Concomitant]
  4. FAMOTIDINE [Concomitant]
  5. AMOXICILLIN TRIHYDRATE [Concomitant]

REACTIONS (6)
  - ALANINE AMINOTRANSFERASE INCREASED [None]
  - ASPARTATE AMINOTRANSFERASE INCREASED [None]
  - BLOOD THYROID STIMULATING HORMONE INCREASED [None]
  - PLATELET COUNT DECREASED [None]
  - PYREXIA [None]
  - WHITE BLOOD CELL COUNT DECREASED [None]
